FAERS Safety Report 22361804 (Version 1)
Quarter: 2023Q2

REPORT INFORMATION
  Report Type: Spontaneous
  Country: US (occurrence: US)
  Receive Date: 20230524
  Receipt Date: 20230524
  Transmission Date: 20230721
  Serious: Yes (Other)
  Sender: FDA-Public Use
  Company Number: US-UCBSA-2023025986

PATIENT
  Age: 60 Day

DRUGS (10)
  1. LEVETIRACETAM [Suspect]
     Active Substance: LEVETIRACETAM
     Indication: Partial seizures
     Dosage: 60 MILLIGRAM/KILOGRAM
  2. LEVETIRACETAM [Suspect]
     Active Substance: LEVETIRACETAM
     Dosage: 30 MILLIGRAM/KILOGRAM, 2X/DAY, MAINTENANCE (BID)
     Route: 042
  3. MIDAZOLAM [Suspect]
     Active Substance: MIDAZOLAM
     Indication: Partial seizures
     Dosage: 0.1 MILLIGRAM/KILOGRAM, HOURLY
  4. MIDAZOLAM [Suspect]
     Active Substance: MIDAZOLAM
     Indication: Off label use
     Dosage: 1.5 MILLIGRAM/KILOGRAM, HOURLY
  5. LORAZEPAM [Concomitant]
     Active Substance: LORAZEPAM
     Indication: Partial seizures
     Dosage: 0.1 MILLIGRAM/KILOGRAM
  6. FOSPHENYTOIN [Concomitant]
     Active Substance: FOSPHENYTOIN
     Indication: Partial seizures
     Dosage: 20 MILLIGRAM PES/KG
  7. FOSPHENYTOIN [Concomitant]
     Active Substance: FOSPHENYTOIN
     Dosage: 10 MILLIGRAM PES/KG
  8. PHENOBARBITAL [Concomitant]
     Active Substance: PHENOBARBITAL
     Indication: Partial seizures
     Dosage: 20 MILLIGRAM/KILOGRAM
  9. PENTOBARBITAL [Concomitant]
     Active Substance: PENTOBARBITAL
     Indication: Partial seizures
     Dosage: 0.5 MILLIGRAM/KILOGRAM, HOURLY
  10. PENTOBARBITAL [Concomitant]
     Active Substance: PENTOBARBITAL
     Dosage: 1.5 MILLIGRAM/KILOGRAM, HOURLY

REACTIONS (2)
  - Status epilepticus [Unknown]
  - Off label use [Unknown]
